FAERS Safety Report 11049332 (Version 1)
Quarter: 2015Q2

REPORT INFORMATION
  Report Type: Spontaneous
  Country: TR (occurrence: TR)
  Receive Date: 20150420
  Receipt Date: 20150420
  Transmission Date: 20150821
  Serious: Yes (Other)
  Sender: FDA-Public Use
  Company Number: TR-MYLANLABS-2015M1013065

PATIENT

DRUGS (3)
  1. FLUOROURACIL. [Suspect]
     Active Substance: FLUOROURACIL
     Indication: RECTAL ADENOCARCINOMA
     Dosage: 400MG/M2 FOR TWO HOURS EVERY 14 DAYS
     Route: 040
  2. FLUOROURACIL. [Suspect]
     Active Substance: FLUOROURACIL
     Dosage: 2400MG/M2 FOR 46 HOURS EVERY 14 DAYS
     Route: 041
  3. FOLINIC ACID [Concomitant]
     Active Substance: LEUCOVORIN
     Indication: RECTAL ADENOCARCINOMA
     Dosage: 400MG/M2 FOR TWO HOURS

REACTIONS (4)
  - Eye pain [Unknown]
  - Photophobia [Unknown]
  - Conjunctivitis [Unknown]
  - Palmar-plantar erythrodysaesthesia syndrome [Unknown]
